FAERS Safety Report 25731373 (Version 1)
Quarter: 2025Q3

REPORT INFORMATION
  Report Type: Spontaneous
  Country: US (occurrence: US)
  Receive Date: 20250827
  Receipt Date: 20250827
  Transmission Date: 20251020
  Serious: No
  Sender: VERTEX
  Company Number: US-VERTEX PHARMACEUTICALS-2025-012882

PATIENT

DRUGS (8)
  1. JOURNAVX [Suspect]
     Active Substance: SUZETRIGINE
     Indication: Product used for unknown indication
     Route: 048
  2. MEXILETINE [Suspect]
     Active Substance: MEXILETINE
     Indication: Product used for unknown indication
     Route: 065
  3. CARVEDILOL [Concomitant]
     Active Substance: CARVEDILOL
     Indication: Burning sensation
  4. CARVEDILOL [Concomitant]
     Active Substance: CARVEDILOL
     Indication: Erythema
  5. CARVEDILOL [Concomitant]
     Active Substance: CARVEDILOL
     Indication: Flushing
  6. PROPRANOLOL [Concomitant]
     Active Substance: PROPRANOLOL HYDROCHLORIDE
     Indication: Burning sensation
  7. PROPRANOLOL [Concomitant]
     Active Substance: PROPRANOLOL HYDROCHLORIDE
     Indication: Erythema
  8. PROPRANOLOL [Concomitant]
     Active Substance: PROPRANOLOL HYDROCHLORIDE
     Indication: Flushing

REACTIONS (3)
  - Burning sensation [Unknown]
  - Erythema [Unknown]
  - Flushing [Unknown]
